FAERS Safety Report 25133737 (Version 1)
Quarter: 2025Q1

REPORT INFORMATION
  Report Type: Spontaneous
  Country: DE (occurrence: DE)
  Receive Date: 20250328
  Receipt Date: 20250328
  Transmission Date: 20250408
  Serious: Yes (Death)
  Sender: ROCHE
  Company Number: DE-ROCHE-10000241377

PATIENT
  Age: 65 Year
  Sex: Female

DRUGS (3)
  1. ATEZOLIZUMAB [Suspect]
     Active Substance: ATEZOLIZUMAB
     Indication: Small cell lung cancer metastatic
     Dosage: FOUR CYCLES
     Route: 042
  2. CARBOPLATIN [Concomitant]
     Active Substance: CARBOPLATIN
     Indication: Small cell lung cancer metastatic
     Dosage: AREA UNDER CURVE (AUC) 5 ON DAY 1
     Route: 065
  3. ETOPOSIDE [Concomitant]
     Active Substance: ETOPOSIDE
     Indication: Small cell lung cancer metastatic
     Dosage: ON DAY 1-3
     Route: 065

REACTIONS (3)
  - Morphoea [Fatal]
  - Lichen sclerosus [Fatal]
  - Scleroderma [Fatal]
